FAERS Safety Report 5333164-6 (Version None)
Quarter: 2007Q2

REPORT INFORMATION
  Report Type: 
  Country: None (occurrence: None)
  Receive Date: 20070524
  Receipt Date: 20070514
  Transmission Date: 20071010
  Serious: Yes (Hospitalization)
  Sender: FDA-Public Use
  Company Number: FR-SANOFI-SYNTHELABO-A02200701399

PATIENT
  Age: 69 Year
  Sex: Female
  Weight: 59 kg

DRUGS (1)
  1. STILNOX [Suspect]
     Indication: DRUG USE FOR UNKNOWN INDICATION
     Route: 048
     Dates: start: 20070125, end: 20070130

REACTIONS (3)
  - AMNESIA [None]
  - FALL [None]
  - MULTIPLE FRACTURES [None]
